FAERS Safety Report 14251202 (Version 1)
Quarter: 2017Q4

REPORT INFORMATION
  Report Type: Spontaneous
  Country: US (occurrence: US)
  Receive Date: 20171205
  Receipt Date: 20171205
  Transmission Date: 20180321
  Serious: No
  Sender: FDA-Public Use
  Company Number: US-PERRIGO-17US030102

PATIENT
  Age: 9 Year
  Sex: Female
  Weight: 39.91 kg

DRUGS (1)
  1. ESOMEPRAZOLE MAGNESIUM. [Suspect]
     Active Substance: ESOMEPRAZOLE MAGNESIUM
     Indication: ACCIDENTAL EXPOSURE TO PRODUCT
     Dosage: 1 OR 2 CAPSULES, SINGLE
     Route: 048
     Dates: start: 20171108, end: 20171108

REACTIONS (1)
  - Accidental exposure to product [Recovered/Resolved]

NARRATIVE: CASE EVENT DATE: 20171108
